FAERS Safety Report 6999487-X (Version None)
Quarter: 2010Q3

REPORT INFORMATION
  Report Type: 
  Country: None (occurrence: None)
  Receive Date: 20100920
  Receipt Date: 20070604
  Transmission Date: 20110219
  Serious: Yes (Hospitalization, Other)
  Sender: FDA-Public Use
  Company Number: US-ASTRAZENECA-2006UW11415

PATIENT
  Age: 45 Year
  Sex: Female
  Weight: 83.9 kg

DRUGS (19)
  1. SEROQUEL [Suspect]
     Indication: DEPRESSION
     Dosage: 25-100MG
     Route: 048
     Dates: start: 20020101, end: 20061201
  2. SEROQUEL [Suspect]
     Indication: SLEEP DISORDER
     Dosage: 25-100MG
     Route: 048
     Dates: start: 20020101, end: 20061201
  3. SEROQUEL [Suspect]
     Dosage: 25 MG-200 MG
     Route: 048
     Dates: start: 20050316
  4. SEROQUEL [Suspect]
     Dosage: 25 MG-200 MG
     Route: 048
     Dates: start: 20050316
  5. GEODON [Concomitant]
  6. OTHER PSYCHIATRIC MEDICATION [Concomitant]
  7. LANTUS [Concomitant]
     Dosage: 100 U/ML DISPENSED
     Dates: start: 20051105
  8. NEURONTIN [Concomitant]
     Route: 048
     Dates: start: 20050221
  9. GLYBURIDE [Concomitant]
     Route: 048
     Dates: start: 20041102
  10. GLUCOPHAGE [Concomitant]
     Dosage: 1000 MG-2000 MG
     Route: 048
     Dates: start: 20030224
  11. COLACE [Concomitant]
     Route: 048
     Dates: start: 19951216
  12. CLONAZEPAM [Concomitant]
     Route: 048
     Dates: start: 20061010
  13. AVANDIA [Concomitant]
     Dosage: 2 MG-4 MG
     Route: 048
     Dates: start: 20050131
  14. NEXIUM [Concomitant]
     Route: 048
     Dates: start: 20041102
  15. LOVASTATIN [Concomitant]
     Dosage: 20 MG-40 MG
     Route: 048
     Dates: start: 20041102
  16. LISINOPRIL [Concomitant]
     Route: 048
     Dates: start: 20041102
  17. LEVAQUIN [Concomitant]
     Dates: start: 20001122
  18. PREDNISONE [Concomitant]
     Dates: start: 20070207
  19. TRAZODONE HCL [Concomitant]
     Route: 048
     Dates: start: 20050712

REACTIONS (5)
  - DIABETES MELLITUS [None]
  - DIABETES MELLITUS INADEQUATE CONTROL [None]
  - PANCREATITIS [None]
  - PANCREATITIS CHRONIC [None]
  - TARDIVE DYSKINESIA [None]
